FAERS Safety Report 13919822 (Version 1)
Quarter: 2017Q3

REPORT INFORMATION
  Report Type: Spontaneous
  Country: US (occurrence: US)
  Receive Date: 20170829
  Receipt Date: 20170829
  Transmission Date: 20171127
  Serious: Yes (Hospitalization)
  Sender: FDA-Public Use
  Company Number: None

PATIENT
  Age: 3 Year
  Weight: 15.4 kg

DRUGS (10)
  1. ACYCLOVIR. [Concomitant]
     Active Substance: ACYCLOVIR
  2. DIAPER RASH OINTMENT [Concomitant]
  3. METHOTREXATE. [Suspect]
     Active Substance: METHOTREXATE
     Indication: PROPHYLAXIS
     Dosage: ?          OTHER FREQUENCY:X ONCE;?
     Route: 037
  4. EMLA [Concomitant]
     Active Substance: LIDOCAINE\PRILOCAINE
  5. RANITIDINE. [Concomitant]
     Active Substance: RANITIDINE
  6. BACTRIM [Concomitant]
     Active Substance: SULFAMETHOXAZOLE\TRIMETHOPRIM
  7. GABAPENTIN. [Concomitant]
     Active Substance: GABAPENTIN
  8. ONDANSETRON [Concomitant]
     Active Substance: ONDANSETRON
  9. MIRALAX [Concomitant]
     Active Substance: POLYETHYLENE GLYCOL 3350
  10. NYSTATIN. [Concomitant]
     Active Substance: NYSTATIN

REACTIONS (1)
  - Nervous system disorder [None]

NARRATIVE: CASE EVENT DATE: 20170726
